FAERS Safety Report 13500360 (Version 1)
Quarter: 2017Q2

REPORT INFORMATION
  Report Type: Spontaneous
  Country: JP (occurrence: JP)
  Receive Date: 20170501
  Receipt Date: 20170501
  Transmission Date: 20170830
  Serious: Yes (Hospitalization, Other)
  Sender: FDA-Public Use
  Company Number: JP-SA-2017SA076006

PATIENT
  Age: 84 Year
  Sex: Male
  Weight: 48 kg

DRUGS (14)
  1. ISOVORIN [Concomitant]
     Active Substance: LEUCOVORIN CALCIUM
     Dosage: CONTINUOUS INFUSION
     Route: 065
     Dates: start: 20170301, end: 20170301
  2. ELPLAT [Suspect]
     Active Substance: OXALIPLATIN
     Indication: PANCREATIC CARCINOMA
     Route: 041
     Dates: start: 20170301, end: 20170301
  3. ALOXI [Concomitant]
     Active Substance: PALONOSETRON HYDROCHLORIDE
     Route: 065
     Dates: start: 20161207
  4. LACTEC [Concomitant]
     Active Substance: CALCIUM CHLORIDE ANHYDROUS\POTASSIUM CHLORIDE\SODIUM CHLORIDE\SODIUM LACTATE
     Route: 065
     Dates: start: 20170301, end: 20170301
  5. 5-FU [Concomitant]
     Active Substance: FLUOROURACIL
     Route: 040
     Dates: start: 20151013, end: 20151013
  6. CAMPTO [Concomitant]
     Active Substance: IRINOTECAN
     Route: 042
     Dates: start: 20151013, end: 20151013
  7. ALOXI [Concomitant]
     Active Substance: PALONOSETRON HYDROCHLORIDE
     Route: 065
     Dates: start: 20170301
  8. DECADRON [Concomitant]
     Active Substance: DEXAMETHASONE
     Dosage: 1
     Route: 065
     Dates: start: 20161207
  9. ELPLAT [Suspect]
     Active Substance: OXALIPLATIN
     Indication: PANCREATIC CARCINOMA
     Route: 041
     Dates: start: 20151013, end: 20151013
  10. CAMPTO [Concomitant]
     Active Substance: IRINOTECAN
     Route: 042
     Dates: start: 20170301, end: 20170301
  11. 5-FU [Concomitant]
     Active Substance: FLUOROURACIL
     Route: 040
     Dates: start: 20170301, end: 20170301
  12. ELPLAT [Suspect]
     Active Substance: OXALIPLATIN
     Indication: PANCREATIC CARCINOMA
     Route: 041
     Dates: start: 20161207, end: 20161207
  13. ISOVORIN [Concomitant]
     Active Substance: LEUCOVORIN CALCIUM
     Route: 065
     Dates: start: 20151013, end: 20151013
  14. DECADRON [Concomitant]
     Active Substance: DEXAMETHASONE
     Dosage: 1
     Route: 065
     Dates: start: 20151013

REACTIONS (2)
  - Seizure [Recovering/Resolving]
  - Epilepsy [Recovering/Resolving]

NARRATIVE: CASE EVENT DATE: 20170301
